FAERS Safety Report 9308209 (Version 2)
Quarter: 2013Q2

REPORT INFORMATION
  Report Type: Report from Study
  Country: JP (occurrence: JP)
  Receive Date: 20130524
  Receipt Date: 20130531
  Transmission Date: 20140414
  Serious: Yes (Hospitalization)
  Sender: FDA-Public Use
  Company Number: JP-009507513-2012SP021713

PATIENT
  Age: 64 Year
  Sex: Male
  Weight: 75 kg

DRUGS (15)
  1. PEGINTRON [Suspect]
     Indication: CHRONIC HEPATITIS C
     Dosage: 1.5 MICROGRAM PER KILOGRAM, QW
     Route: 058
     Dates: start: 20120405, end: 20120517
  2. PEGINTRON [Suspect]
     Dosage: 1.3 MICROGRAM PER KILOGRAM, QW
     Route: 058
     Dates: start: 20120524, end: 20120712
  3. PEGINTRON [Suspect]
     Dosage: 1 MICROGRAM PER KILOGRAM, QW
     Route: 058
     Dates: start: 20120719, end: 20120913
  4. PEGINTRON [Suspect]
     Dosage: 0.8 MICROGRAM PER KILOGRAM, QW
     Route: 058
     Dates: start: 20120920
  5. REBETOL CAPSULES 200MG [Suspect]
     Indication: CHRONIC HEPATITIS C
     Dosage: 800 MG, QD
     Route: 048
     Dates: start: 20120405, end: 20120415
  6. REBETOL CAPSULES 200MG [Suspect]
     Dosage: 400 MG, QD
     Route: 048
     Dates: start: 20120416, end: 20120418
  7. REBETOL CAPSULES 200MG [Suspect]
     Dosage: 200 MG, QD
     Route: 048
     Dates: start: 20120524, end: 20120704
  8. REBETOL CAPSULES 200MG [Suspect]
     Dosage: 400 MG, QD
     Route: 048
     Dates: start: 20120705
  9. TELAVIC [Suspect]
     Indication: CHRONIC HEPATITIS C
     Dosage: 2250 MG, QD
     Route: 048
     Dates: start: 20120405, end: 20120410
  10. URSO [Concomitant]
     Indication: CHRONIC HEPATITIS C
     Dosage: 600 MG, QD,  POR
     Route: 048
  11. GLYCYRON [Concomitant]
     Indication: CHRONIC HEPATITIS C
     Dosage: 6 DF, QD
     Route: 048
  12. TAKEPRON [Concomitant]
     Indication: GASTRIC ULCER
     Dosage: 30 MG, QD, POR
     Route: 048
  13. LENDORMIN [Concomitant]
     Indication: INSOMNIA
     Dosage: 0.5 MG, QD, POR
     Route: 048
     Dates: end: 20120420
  14. AMOBAN [Concomitant]
     Indication: INSOMNIA
     Dosage: 10 MG, QD, POR
     Route: 048
  15. BICALUTAMIDE [Concomitant]
     Indication: PROSTATE CANCER
     Dosage: 80 MG, QD, POR
     Route: 048
     Dates: end: 20120420

REACTIONS (1)
  - Rash [Recovered/Resolved]
